FAERS Safety Report 12819131 (Version 2)
Quarter: 2016Q4

REPORT INFORMATION
  Report Type: Spontaneous
  Country: US (occurrence: US)
  Receive Date: 20161006
  Receipt Date: 20161227
  Transmission Date: 20170207
  Serious: Yes (Hospitalization)
  Sender: FDA-Public Use
  Company Number: US-PFIZER INC-2016387122

PATIENT
  Age: 69 Year
  Sex: Female

DRUGS (1)
  1. IBRANCE [Suspect]
     Active Substance: PALBOCICLIB
     Indication: BREAST CANCER FEMALE
     Dosage: 125 MG, CYCLIC (TAKE 1 CAPSULE DAILY FOR 3 WEEKS, THEN OFF-1 WEEK)
     Route: 048

REACTIONS (3)
  - Blood potassium decreased [Recovered/Resolved]
  - White blood cell count decreased [Recovered/Resolved]
  - Dehydration [Recovered/Resolved]
